FAERS Safety Report 5899594-9 (Version None)
Quarter: 2008Q3

REPORT INFORMATION
  Report Type: 
  Country: None (occurrence: None)
  Receive Date: 20080926
  Receipt Date: 20080923
  Transmission Date: 20090109
  Serious: Yes (Other)
  Sender: FDA-Public Use
  Company Number: PHEH2008US08525

PATIENT
  Sex: Female

DRUGS (5)
  1. TEGRETOL [Suspect]
     Indication: BIPOLAR DISORDER
     Dosage: 400 MG, QHS
     Dates: start: 20070413
  2. LITHIUM CARBONATE [Concomitant]
     Dosage: 900 MG, QD
     Route: 048
  3. TRAZODONE HCL [Concomitant]
     Dosage: 100 MG, 1 OR 2 HS PRN
  4. AMBIEN [Concomitant]
     Dosage: 10 MG, HS PRN
  5. EFFEXOR XR [Concomitant]
     Dosage: 150 MG, QD AM

REACTIONS (3)
  - CONCOMITANT DISEASE PROGRESSION [None]
  - DYSPHAGIA [None]
  - SENSATION OF FOREIGN BODY [None]
